FAERS Safety Report 7277864-X (Version None)
Quarter: 2011Q1

REPORT INFORMATION
  Report Type: 
  Country: None (occurrence: None)
  Receive Date: 20110207
  Receipt Date: 20110131
  Transmission Date: 20110831
  Serious: Yes (Other)
  Sender: FDA-Public Use
  Company Number: US-GENZYME-CAMP-1001342

PATIENT
  Age: 53 Year

DRUGS (5)
  1. PROLEUKIN [Concomitant]
     Indication: DECREASED IMMUNE RESPONSIVENESS
     Dosage: 1 MU/M2, QDX5 FOR 4 WEEKS EVERY 6 WEEKS FOR 6 CYCLES
     Route: 058
  2. FLUDARA [Suspect]
     Indication: STEM CELL TRANSPLANT
     Dosage: 30 MG/M2, QD
     Route: 065
  3. CAMPATH [Suspect]
     Indication: STEM CELL TRANSPLANT
     Dosage: 20 MG, QDX5
     Route: 042
  4. CYCLOPHOSPHAMIDE [Suspect]
     Indication: STEM CELL TRANSPLANT
     Dosage: 500 MG/M2, QD
     Route: 065
  5. FILGRASTIM [Concomitant]
     Indication: NEUTROPENIA
     Dosage: 5 MCG/KG, UNK
     Route: 065

REACTIONS (1)
  - ACUTE GRAFT VERSUS HOST DISEASE IN SKIN [None]
